FAERS Safety Report 5875968-7 (Version None)
Quarter: 2008Q3

REPORT INFORMATION
  Report Type: 
  Country: None (occurrence: None)
  Receive Date: 20080905
  Receipt Date: 20080825
  Transmission Date: 20090109
  Serious: Yes (Death, Life-Threatening)
  Sender: FDA-Public Use
  Company Number: 2008-02956

PATIENT
  Age: 64 Year
  Sex: Male
  Weight: 50 kg

DRUGS (5)
  1. VELCADE [Suspect]
     Indication: MULTIPLE MYELOMA
     Dosage: 2 MG, INTRAVENOUS
     Route: 042
     Dates: start: 20080723, end: 20080726
  2. DECADRON [Concomitant]
  3. SOLU-MEDROL (METHYLPREDISOLONE SODIUM SUCCINATE) INJECTION [Concomitant]
  4. RED BLOOD CELLS [Concomitant]
  5. PLASMA [Concomitant]

REACTIONS (6)
  - HAEMORRHAGIC DIATHESIS [None]
  - LIVER DISORDER [None]
  - LUNG CONSOLIDATION [None]
  - PULMONARY ALVEOLAR HAEMORRHAGE [None]
  - RESPIRATORY FAILURE [None]
  - TUMOUR LYSIS SYNDROME [None]
